FAERS Safety Report 19360834 (Version 1)
Quarter: 2021Q2

REPORT INFORMATION
  Report Type: Report from Study
  Country: None (occurrence: US)
  Receive Date: 20210602
  Receipt Date: 20210602
  Transmission Date: 20210717
  Serious: No
  Sender: FDA-Public Use
  Company Number: US-MDD US OPERATIONS-MDD202011-002216

PATIENT
  Age: 48 Year
  Sex: Female
  Weight: 111 kg

DRUGS (4)
  1. RYTARY [Concomitant]
     Active Substance: CARBIDOPA\LEVODOPA
  2. MVI [Concomitant]
     Active Substance: VITAMINS
     Dosage: NOT PROVIDED
  3. APOKYN [Suspect]
     Active Substance: APOMORPHINE HYDROCHLORIDE
     Indication: PARKINSON^S DISEASE
     Dosage: NOT PROVIDED
  4. NEUPRO [Concomitant]
     Active Substance: ROTIGOTINE
     Dosage: NOT PROVIDED

REACTIONS (2)
  - Therapy non-responder [Unknown]
  - Abdominal discomfort [Recovered/Resolved]

NARRATIVE: CASE EVENT DATE: 20201103
